FAERS Safety Report 18807578 (Version 2)
Quarter: 2021Q1

REPORT INFORMATION
  Report Type: Report from Study
  Country: RU (occurrence: RU)
  Receive Date: 20210129
  Receipt Date: 20210217
  Transmission Date: 20210419
  Serious: Yes (Hospitalization)
  Sender: FDA-Public Use
  Company Number: RU-JNJFOC-20210138098

PATIENT
  Age: 12 Year
  Sex: Male
  Weight: 48 kg

DRUGS (10)
  1. ALUMINIUM PHOSPHATE [Concomitant]
     Active Substance: ALUMINUM PHOSPHATE
     Indication: GASTRITIS
     Dosage: 1
     Route: 048
     Dates: start: 20170904, end: 20180421
  2. GRAMICIDIN [Concomitant]
     Active Substance: GRAMICIDIN
     Indication: RESPIRATORY TRACT INFECTION
     Dosage: 1
     Route: 048
     Dates: start: 20190118, end: 20190125
  3. BENZYDAMINE [Concomitant]
     Active Substance: BENZYDAMINE
     Indication: RESPIRATORY TRACT INFECTION
     Dosage: 1
     Route: 048
     Dates: start: 20190118, end: 20190125
  4. FOLIC ACID. [Concomitant]
     Active Substance: FOLIC ACID
     Indication: PROPHYLAXIS
     Route: 048
     Dates: start: 201704
  5. ACETYLCYSTEINE. [Concomitant]
     Active Substance: ACETYLCYSTEINE
     Indication: RESPIRATORY TRACT INFECTION
     Route: 048
     Dates: start: 20190118, end: 20190120
  6. MELOXICAM. [Concomitant]
     Active Substance: MELOXICAM
     Indication: JUVENILE IDIOPATHIC ARTHRITIS
     Route: 048
     Dates: start: 20170810, end: 20180327
  7. GOLIMUMAB [Suspect]
     Active Substance: GOLIMUMAB
     Indication: JUVENILE IDIOPATHIC ARTHRITIS
     Route: 042
     Dates: start: 20171005, end: 20201123
  8. COLECALCIFEROL [Concomitant]
     Active Substance: CHOLECALCIFEROL
     Indication: PROPHYLAXIS
     Dosage: HS (AT BEDTIME)
     Route: 048
     Dates: start: 20170814
  9. CALCIUM CARBONATE. [Concomitant]
     Active Substance: CALCIUM CARBONATE
     Indication: PROPHYLAXIS
     Dosage: HS (AT BEDTIME)
     Route: 048
     Dates: start: 20170814
  10. AMBROXOL [Concomitant]
     Active Substance: AMBROXOL
     Indication: RESPIRATORY TRACT INFECTION
     Route: 048
     Dates: start: 20190121, end: 20190125

REACTIONS (1)
  - Crohn^s disease [Recovering/Resolving]

NARRATIVE: CASE EVENT DATE: 20210111
